FAERS Safety Report 8813381 (Version 1)
Quarter: 2012Q4

REPORT INFORMATION
  Report Type: 
  Country: US (occurrence: US)
  Receive Date: 20120927
  Receipt Date: 20120927
  Transmission Date: 20130627
  Serious: No
  Sender: FDA-Public Use
  Company Number: US-AMGEN-USASP2012049861

PATIENT
  Age: 69 Year
  Sex: Female
  Weight: 55.33 kg

DRUGS (13)
  1. PROLIA [Suspect]
     Indication: OSTEOPOROSIS POSTMENOPAUSAL
     Dosage: 60 mg, q6mo
     Route: 058
     Dates: start: 20110222
  2. PROLIA [Suspect]
     Dosage: 60 mg, q6mo
     Route: 058
     Dates: start: 20110902
  3. PROLIA [Suspect]
     Dosage: 60 mg, q6mo
     Route: 058
     Dates: start: 20120326
  4. PREDNISONE [Concomitant]
  5. SEREVENT [Concomitant]
     Indication: CHRONIC OBSTRUCTIVE PULMONARY DISEASE
     Dosage: UNK UNK, bid
  6. PULMICORT [Concomitant]
     Indication: CHRONIC OBSTRUCTIVE PULMONARY DISEASE
     Dosage: UNK UNK, bid
  7. SPIRIVA [Concomitant]
     Indication: CHRONIC OBSTRUCTIVE PULMONARY DISEASE
     Dosage: UNK UNK, qd
  8. ALBUTEROL [Concomitant]
     Indication: CHRONIC OBSTRUCTIVE PULMONARY DISEASE
     Dosage: UNK UNK, prn
  9. TESSALON PERLE [Concomitant]
     Indication: COUGH
     Dosage: UNK UNK, prn
  10. HYOSCYAMINE [Concomitant]
     Dosage: 12.5 mg, prn
  11. VALIUM [Concomitant]
  12. EYE DROPS [Concomitant]
     Indication: GLAUCOMA
  13. SIMVASTATIN [Concomitant]
     Dosage: 20 mg, qd

REACTIONS (5)
  - Injection site pain [Not Recovered/Not Resolved]
  - Incorrect route of drug administration [Not Recovered/Not Resolved]
  - Umbilical hernia [Not Recovered/Not Resolved]
  - Dry skin [Not Recovered/Not Resolved]
  - Skin exfoliation [Not Recovered/Not Resolved]
